FAERS Safety Report 18663408 (Version 1)
Quarter: 2020Q4

REPORT INFORMATION
  Report Type: Spontaneous
  Country: US (occurrence: US)
  Receive Date: 20201224
  Receipt Date: 20201224
  Transmission Date: 20210114
  Serious: No
  Sender: FDA-Public Use
  Company Number: US-TAKEDA-2020TUS059022

PATIENT
  Weight: 27.66 kg

DRUGS (4)
  1. LIALDA [Suspect]
     Active Substance: MESALAMINE
     Indication: PRODUCT USED FOR UNKNOWN INDICATION
     Dosage: 2 GRAM, EVERY NIGHT
     Route: 054
  2. APRISO [Concomitant]
     Active Substance: MESALAMINE
     Dosage: 1.5 GRAM, QD
  3. ENTYVIO [Suspect]
     Active Substance: VEDOLIZUMAB
     Indication: COLITIS
  4. EMLA [Concomitant]
     Active Substance: LIDOCAINE\PRILOCAINE
     Dosage: 2.5 PERCENT 1 HOUR PRIOR TO INFUSION OR LAB DRAW

REACTIONS (2)
  - Inability to afford medication [Unknown]
  - No adverse event [Unknown]
